APPROVED DRUG PRODUCT: REVLIMID
Active Ingredient: LENALIDOMIDE
Strength: 15MG
Dosage Form/Route: CAPSULE;ORAL
Application: N021880 | Product #003 | TE Code: AB
Applicant: BRISTOL MYERS SQUIBB
Approved: Jun 29, 2006 | RLD: Yes | RS: No | Type: RX

PATENTS:
Patent 8741929 | Expires: Mar 8, 2028
Patent 7465800 | Expires: Apr 27, 2027

EXCLUSIVITY:
Code: ODE-241 | Date: May 28, 2026
Code: ODE-245 | Date: May 28, 2026